FAERS Safety Report 21638337 (Version 3)
Quarter: 2022Q4

REPORT INFORMATION
  Report Type: Spontaneous
  Country: US (occurrence: US)
  Receive Date: 20221124
  Receipt Date: 20221222
  Transmission Date: 20230113
  Serious: Yes (Hospitalization)
  Sender: FDA-Public Use
  Company Number: US-SAREPTA THERAPEUTICS INC.-SRP2022-002753

PATIENT
  Age: 1 Year
  Sex: Male
  Weight: 9.77 kg

DRUGS (2)
  1. AMONDYS 45 [Suspect]
     Active Substance: CASIMERSEN
     Indication: Duchenne muscular dystrophy
     Dosage: 245 MILLIGRAM, WEEKLY
     Route: 042
     Dates: start: 20220518, end: 20221108
  2. AMONDYS 45 [Suspect]
     Active Substance: CASIMERSEN
     Dosage: 245 MILLIGRAM, WEEKLY
     Route: 042
     Dates: start: 20221207

REACTIONS (3)
  - Device related infection [Recovering/Resolving]
  - Streptococcal bacteraemia [Recovering/Resolving]
  - Swelling face [Recovered/Resolved]

NARRATIVE: CASE EVENT DATE: 20221113
